FAERS Safety Report 22118639 (Version 3)
Quarter: 2023Q2

REPORT INFORMATION
  Report Type: Spontaneous
  Country: US (occurrence: US)
  Receive Date: 20230321
  Receipt Date: 20230405
  Transmission Date: 20230721
  Serious: Yes (Hospitalization)
  Sender: FDA-Public Use
  Company Number: US-UROGEN PHARMA LTD.-2023-UGN-000028

PATIENT

DRUGS (3)
  1. JELMYTO [Suspect]
     Active Substance: MITOMYCIN
     Indication: Transitional cell cancer of the renal pelvis and ureter
     Dosage: ONE TIME PER WEEK (INSTILLATION)
     Route: 065
     Dates: start: 20230215, end: 20230215
  2. JELMYTO [Suspect]
     Active Substance: MITOMYCIN
     Indication: Single functional kidney
     Dosage: ONE TIME PER WEEK (INSTILLATION)
     Route: 065
     Dates: start: 20230223, end: 20230223
  3. JELMYTO [Suspect]
     Active Substance: MITOMYCIN
     Dosage: ONE TIME PER WEEK (INSTILLATION)
     Route: 065
     Dates: start: 20230301, end: 20230301

REACTIONS (4)
  - Arthritis [Unknown]
  - Fatigue [Unknown]
  - Rash [Unknown]
  - Pruritus [Unknown]

NARRATIVE: CASE EVENT DATE: 20230301
